FAERS Safety Report 10234003 (Version 1)
Quarter: 2014Q2

REPORT INFORMATION
  Report Type: Report from Study
  Country: US (occurrence: US)
  Receive Date: 20140612
  Receipt Date: 20140612
  Transmission Date: 20141212
  Serious: Yes (Death)
  Sender: FDA-Public Use
  Company Number: US-JNJFOC-20140606422

PATIENT
  Age: 54 Year
  Sex: Female
  Weight: 120.1 kg

DRUGS (27)
  1. IBUPROFEN [Suspect]
     Indication: RHEUMATOID ARTHRITIS
     Route: 048
     Dates: start: 20130108
  2. IBUPROFEN [Suspect]
     Indication: OSTEOARTHRITIS
     Route: 048
     Dates: start: 20130108
  3. METFORMIN HYDROCHLORIDE [Concomitant]
     Indication: DIABETES MELLITUS
     Route: 048
     Dates: start: 2000
  4. PANTOPRAZOLE [Concomitant]
     Indication: GASTROOESOPHAGEAL REFLUX DISEASE
     Route: 048
     Dates: start: 2008
  5. METHYLPHENIDATE [Concomitant]
     Indication: ANXIETY
     Route: 048
     Dates: start: 2012
  6. GLIMEPIRIDE [Concomitant]
     Indication: DIABETES MELLITUS
     Route: 048
     Dates: start: 201112
  7. CYMBALTA [Concomitant]
     Indication: ANXIETY
     Route: 048
     Dates: start: 201206
  8. ATORVASTATIN [Concomitant]
     Indication: HYPERCHOLESTEROLAEMIA
     Route: 048
     Dates: start: 2000
  9. ZETIA [Concomitant]
     Indication: HYPERCHOLESTEROLAEMIA
     Route: 048
     Dates: start: 2000
  10. PROAIR(SALBUTAMOL SULFATE) [Concomitant]
     Indication: ASTHMA
     Route: 055
     Dates: start: 2000
  11. PROAIR(SALBUTAMOL SULFATE) [Concomitant]
     Indication: BRONCHITIS CHRONIC
     Route: 055
     Dates: start: 2000
  12. LYRICA [Concomitant]
     Indication: PAIN IN EXTREMITY
     Route: 048
     Dates: start: 20130906
  13. CALCIUM W/ VITAMIN D [Concomitant]
     Indication: OSTEOPOROSIS
     Route: 048
     Dates: start: 2011
  14. ATENOLOL [Concomitant]
     Indication: HYPERTENSION
     Route: 048
     Dates: start: 2003
  15. AMITIZA (LUBIPROSTONE) [Concomitant]
     Indication: CONSTIPATION
     Route: 048
     Dates: start: 2011
  16. COLACE [Concomitant]
     Indication: CONSTIPATION
     Route: 048
     Dates: start: 2002
  17. PRAMIPEXOLE [Concomitant]
     Indication: PSYCHOMOTOR HYPERACTIVITY
     Route: 048
     Dates: start: 201201
  18. RANITIDINE [Concomitant]
     Indication: GASTROOESOPHAGEAL REFLUX DISEASE
     Route: 048
     Dates: start: 2002
  19. POLYETHYLENE GLYCOL [Concomitant]
     Indication: CONSTIPATION
     Route: 048
     Dates: start: 2000
  20. FUROSEMIDE [Concomitant]
     Indication: OEDEMA PERIPHERAL
     Route: 048
     Dates: start: 20130106
  21. HYDROXYZINE [Concomitant]
     Indication: ANXIETY
     Route: 048
     Dates: start: 20130102
  22. OXYCODONE [Concomitant]
     Indication: ARTHRALGIA
     Route: 048
     Dates: start: 20130906
  23. TOCOPHEROL [Concomitant]
     Indication: SUPPLEMENTATION THERAPY
     Route: 048
     Dates: start: 2012
  24. NEXIUM [Concomitant]
     Indication: PROPHYLAXIS AGAINST GASTROINTESTINAL ULCER
     Route: 048
     Dates: start: 20130108
  25. HUMULIN I [Concomitant]
     Indication: DIABETES MELLITUS
     Route: 058
     Dates: start: 2011
  26. HUMULIN I [Concomitant]
     Indication: DIABETES MELLITUS
     Route: 058
     Dates: start: 2011
  27. HUMULIN I [Concomitant]
     Indication: DIABETES MELLITUS
     Route: 058
     Dates: start: 2011

REACTIONS (1)
  - Death [Fatal]
